FAERS Safety Report 8419724-4 (Version None)
Quarter: 2012Q2

REPORT INFORMATION
  Report Type: 
  Country: None (occurrence: None)
  Receive Date: 20120323
  Receipt Date: 20111213
  Transmission Date: 20120825
  Serious: Yes (Other)
  Sender: FDA-Public Use
  Company Number: 163-21880-11121737

PATIENT
  Age: 69 Year
  Sex: Female

DRUGS (13)
  1. HYDROCHLOROTHIAZIDE [Concomitant]
  2. CITALOPRAM HYDROBROMIDE [Concomitant]
  3. BUPROPION HCL [Concomitant]
  4. REVLIMID [Suspect]
     Indication: MULTIPLE MYELOMA
     Dosage: 15 MG, DAILY X 14 DAYS, PO
     Route: 048
     Dates: start: 20111101
  5. TRAMADOL HCL [Concomitant]
  6. NORTRIPTYLINE HCL [Concomitant]
  7. WARFARIN SODIUM [Concomitant]
  8. CLONAZEPAM [Concomitant]
  9. VICODIN [Concomitant]
  10. VELCADE [Suspect]
     Indication: MULTIPLE MYELOMA
     Dates: start: 20111101
  11. DEXAMETHASONE [Concomitant]
  12. SIMVASTATIN [Concomitant]
  13. OMEPRAZOLE [Concomitant]

REACTIONS (2)
  - RASH PAPULAR [None]
  - OEDEMA PERIPHERAL [None]
